FAERS Safety Report 7425431-7 (Version None)
Quarter: 2011Q2

REPORT INFORMATION
  Report Type: 
  Country: None (occurrence: None)
  Receive Date: 20110420
  Receipt Date: 20110412
  Transmission Date: 20111010
  Serious: Yes (Other)
  Sender: FDA-Public Use
  Company Number: JP-ASTELLAS-2011JP002619

PATIENT
  Age: 64 Year
  Sex: Female
  Weight: 34.1 kg

DRUGS (4)
  1. PIPERACILLIN AND TAZOBACTAM [Concomitant]
     Dosage: 13.5 G, UNKNOWN/D
     Route: 065
  2. FUNGUARD [Suspect]
     Dosage: 100 MG, UNKNOWN/D
     Route: 065
  3. DROXIDOPA [Concomitant]
     Indication: MULTIPLE SYSTEM ATROPHY
     Dosage: 200 MG, UNKNOWN/D
     Route: 065
  4. TALTIRELIN [Concomitant]
     Indication: MULTIPLE SYSTEM ATROPHY
     Dosage: 10 MG, UNKNOWN/D
     Route: 065

REACTIONS (3)
  - DRUG INEFFECTIVE [None]
  - HEPATIC FUNCTION ABNORMAL [None]
  - SYSTEMIC CANDIDA [None]
